FAERS Safety Report 14602996 (Version 2)
Quarter: 2018Q1

REPORT INFORMATION
  Report Type: Report from Study
  Country: SG (occurrence: SG)
  Receive Date: 20180306
  Receipt Date: 20180314
  Transmission Date: 20180509
  Serious: No
  Sender: FDA-Public Use
  Company Number: SG-SA-2018SA063905

PATIENT
  Age: 49 Year
  Sex: Male
  Weight: 65 kg

DRUGS (6)
  1. SAR231893 [Suspect]
     Active Substance: DUPILUMAB
     Indication: DERMATITIS ATOPIC
     Route: 058
     Dates: start: 201607, end: 20180108
  2. ADALAT [Concomitant]
     Active Substance: NIFEDIPINE
     Route: 065
     Dates: start: 2007
  3. SYMBICORT [Concomitant]
     Active Substance: BUDESONIDE\FORMOTEROL FUMARATE DIHYDRATE
     Route: 065
     Dates: start: 20160118
  4. CHARCOAL, ACTIVATED [Concomitant]
     Active Substance: ACTIVATED CHARCOAL
     Route: 065
     Dates: start: 20170719
  5. SAR231893 [Suspect]
     Active Substance: DUPILUMAB
     Indication: DERMATITIS ATOPIC
     Route: 058
     Dates: start: 20160704, end: 20160704
  6. QV CREAM [Concomitant]
     Route: 065
     Dates: start: 20150421

REACTIONS (1)
  - Appendix disorder [Recovering/Resolving]

NARRATIVE: CASE EVENT DATE: 20171116
